FAERS Safety Report 10641738 (Version 1)
Quarter: 2014Q4

REPORT INFORMATION
  Report Type: Spontaneous
  Country: GB (occurrence: GB)
  Receive Date: 20141209
  Receipt Date: 20141209
  Transmission Date: 20150529
  Serious: Yes (Disabling)
  Sender: FDA-Public Use
  Company Number: PHHY2014GB158475

PATIENT
  Age: 65 Year
  Sex: Male
  Weight: 87 kg

DRUGS (15)
  1. FLUCLOXACILLIN [Concomitant]
     Active Substance: FLUCLOXACILLIN
     Dates: start: 20140823, end: 20140922
  2. AMLODIPINE [Suspect]
     Active Substance: AMLODIPINE BESYLATE
     Route: 048
     Dates: start: 20141111
  3. LANSOPRAZOLE. [Concomitant]
     Active Substance: LANSOPRAZOLE
     Dates: start: 20140702
  4. PREDNISOLONE. [Concomitant]
     Active Substance: PREDNISOLONE
     Dates: start: 20140829, end: 20140912
  5. CETIRIZINE [Concomitant]
     Active Substance: CETIRIZINE HYDROCHLORIDE
     Dates: start: 20140818, end: 20141015
  6. CLOBETASOL PROPIONATE. [Concomitant]
     Active Substance: CLOBETASOL PROPIONATE
     Dates: start: 20140923, end: 20141021
  7. ALLOPURINOL. [Concomitant]
     Active Substance: ALLOPURINOL
     Dates: start: 20140725
  8. ISPAGHULA EXTRACT\PSYLLIUM [Concomitant]
     Active Substance: PLANTAGO OVATA SEED\PLANTAGO SEED
     Dates: start: 20140731
  9. METFORMIN [Concomitant]
     Active Substance: METFORMIN HYDROCHLORIDE
     Dates: start: 20140702
  10. MUPIROCIN. [Concomitant]
     Active Substance: MUPIROCIN
     Dates: start: 20140823, end: 20140830
  11. ATENOLOL. [Concomitant]
     Active Substance: ATENOLOL
     Dates: start: 20140725, end: 20141113
  12. ENALAPRIL [Concomitant]
     Active Substance: ENALAPRIL
     Dates: start: 20140723
  13. EZETIMIBE. [Concomitant]
     Active Substance: EZETIMIBE
     Dates: start: 20140725
  14. DERMOL [Concomitant]
     Active Substance: BENZALKONIUM CHLORIDE\CHLORHEXIDINE HYDROCHLORIDE\ISOPROPYL MYRISTATE\PARAFFIN
     Dates: start: 20140912, end: 20141010
  15. DIPROBASE [Concomitant]
     Active Substance: CHLOROCRESOL
     Dates: start: 20140912, end: 20140917

REACTIONS (2)
  - Skin exfoliation [Unknown]
  - Burning sensation [Unknown]

NARRATIVE: CASE EVENT DATE: 20141120
